FAERS Safety Report 13775560 (Version 1)
Quarter: 2017Q3

REPORT INFORMATION
  Report Type: Spontaneous
  Country: GB (occurrence: GB)
  Receive Date: 20170720
  Receipt Date: 20170720
  Transmission Date: 20171127
  Serious: Yes (Hospitalization)
  Sender: FDA-Public Use
  Company Number: GB-TEVA-786612ACC

PATIENT
  Sex: Female

DRUGS (3)
  1. LAMOTRIGINE. [Suspect]
     Active Substance: LAMOTRIGINE
     Indication: SEIZURE
  2. COCODAMOL [Suspect]
     Active Substance: ACETAMINOPHEN\CODEINE PHOSPHATE
  3. DIAZEPAM. [Suspect]
     Active Substance: DIAZEPAM

REACTIONS (10)
  - Musculoskeletal stiffness [Unknown]
  - Abnormal loss of weight [Not Recovered/Not Resolved]
  - Pyrexia [Unknown]
  - Dyskinesia [Unknown]
  - Pollakiuria [Unknown]
  - Oliguria [Unknown]
  - Volvulus [Unknown]
  - Urinary tract disorder [Unknown]
  - Malaise [Unknown]
  - Bladder discomfort [Unknown]
